FAERS Safety Report 18259825 (Version 1)
Quarter: 2020Q3

REPORT INFORMATION
  Report Type: Report from Study
  Country: FR (occurrence: FR)
  Receive Date: 20200912
  Receipt Date: 20200912
  Transmission Date: 20201103
  Serious: Yes (Hospitalization)
  Sender: FDA-Public Use
  Company Number: FR-AMGEN-FRACT2020143346

PATIENT
  Age: 64 Year
  Sex: Male
  Weight: 59 kg

DRUGS (32)
  1. IRINOTECAN [Suspect]
     Active Substance: IRINOTECAN
     Indication: COLORECTAL CANCER
     Dosage: 154 MILLIGRAM
     Route: 042
     Dates: start: 20191126
  2. VITALIPID [VITAMINS NOS] [Concomitant]
     Active Substance: VITAMINS
     Dosage: 1 AMP, QD IN THE EVENING
  3. TOPALGIC LP [Concomitant]
     Active Substance: TRAMADOL HYDROCHLORIDE
     Dosage: 100 UNK, BID
  4. DIFFU?K [Concomitant]
     Active Substance: POTASSIUM CHLORIDE
     Dosage: 1, BID
  5. PRIMPERAN [Concomitant]
     Active Substance: METOCLOPRAMIDE HYDROCHLORIDE
     Indication: NAUSEA
     Dosage: 1, TID
  6. OLICLINOMEL [AMINO ACIDS NOS;CARBOHYDRATES NOS;ELECTROLYTES NOS;LIPIDS [Concomitant]
     Route: 042
  7. DECAN [AMMONIUM MOLYBDATE;CHROMIC CHLORIDE;COBALT GLUCONATE;COPPER GLU [Concomitant]
     Route: 042
  8. VIBRAMYCINE [Concomitant]
     Dosage: 100 MILLIGRAM, QD
     Route: 048
  9. OXALIPLATIN. [Suspect]
     Active Substance: OXALIPLATIN
     Indication: COLORECTAL CANCER
     Dosage: 111 MILLIGRAM
     Route: 042
     Dates: start: 20191126
  10. SOLUVIT [ASCORBIC ACID;BIOTIN;CALCIUM PANTOTHENATE;CYANOCOBALAMIN;FOLI [Concomitant]
     Active Substance: VITAMINS
     Dosage: 1 VIAL, QD
  11. DOXYCYCLINE. [Concomitant]
     Active Substance: DOXYCYCLINE
     Dosage: 100 MILLIGRAM, QD
  12. IMODIUM [Concomitant]
     Active Substance: LOPERAMIDE HYDROCHLORIDE
     Dosage: 2 MILLIGRAM, TID
     Route: 048
  13. PARACETAMOL [Concomitant]
     Active Substance: ACETAMINOPHEN
     Indication: PAIN
  14. LOPERAMIDE [Concomitant]
     Active Substance: LOPERAMIDE
     Indication: DIARRHOEA
  15. ELIQUIS [Concomitant]
     Active Substance: APIXABAN
     Dosage: 5 MILLIGRAM, BID
  16. BICARBONATE [Concomitant]
     Active Substance: SODIUM BICARBONATE
     Dosage: UNK UNK, AS NECESSARY
     Route: 048
  17. SMOFKABIVEN [Concomitant]
     Active Substance: AMINO ACIDS\DEXTROSE\ELECTROLYTES NOS\SOYBEAN OIL
     Dosage: 1500 MILLILITER, QOD
  18. NUTRYELT [Concomitant]
     Active Substance: IRON\MINERALS\POTASSIUM IOD\SODIUM FLUORIDE\SODIUM MOLYBDATE\SODIUM SELENITE\ZINC
     Route: 042
  19. PANITUMUMAB [Suspect]
     Active Substance: PANITUMUMAB
     Indication: COLORECTAL CANCER
     Dosage: 384 MILLIGRAM
     Route: 042
     Dates: start: 20191126
  20. 5 FU [Suspect]
     Active Substance: FLUOROURACIL
     Dosage: 3275 MILLIGRAM
     Route: 042
     Dates: start: 20191126
  21. ALLOPURINOL. [Concomitant]
     Active Substance: ALLOPURINOL
     Dosage: 200 MILLIGRAM, QD
  22. FLAMMAZINE [Concomitant]
     Active Substance: SILVER SULFADIAZINE
     Indication: SKIN IRRITATION
     Dosage: 1 APPLICATION, BID
  23. SUPPLIVEN [Concomitant]
     Route: 042
  24. CERNEVIT [Concomitant]
     Active Substance: VITAMINS
     Route: 042
  25. LEVOFOLINATE CALCIUM [Suspect]
     Active Substance: LEVOLEUCOVORIN CALCIUM
     Indication: COLORECTAL CANCER
     Dosage: 341 MILLIGRAM
     Route: 042
     Dates: start: 20191126
  26. ESIDREX [Concomitant]
     Active Substance: HYDROCHLOROTHIAZIDE
     Dosage: 25 MILLIGRAM, QD
  27. AERIUS (DESLORATADINE) [Concomitant]
     Active Substance: DESLORATADINE
     Dosage: 5 MILLIGRAM, QD, AS NECESSARY
  28. RUBOZINC [Concomitant]
     Active Substance: ZINC GLUCONATE
     Dosage: 15 MILLIGRAM, QD
     Route: 048
  29. IMOVANE [Concomitant]
     Active Substance: ZOPICLONE
     Dosage: 7.5 MILLIGRAM, QD
     Route: 048
  30. KABIVEN [Concomitant]
     Active Substance: AMINO ACIDS\ANHYDROUS DEXTROSE\CALCIUM CHLORIDE\MAGNESIUM SULFATE HEPTAHYDRATE\POTASSIUM CHLORIDE\SODIUM ACETATE\SODIUM GLYCEROPHOSPHATE ANHYDROUS\SOYBEAN OIL
     Route: 042
  31. 5 FU [Suspect]
     Active Substance: FLUOROURACIL
     Indication: COLORECTAL CANCER
     Dosage: 544 MILLIGRAM
     Route: 040
     Dates: start: 20191126
  32. TIORFAN [Concomitant]
     Active Substance: RACECADOTRIL
     Dosage: 100 MILLIGRAM, TID
     Route: 048

REACTIONS (1)
  - Malnutrition [Recovered/Resolved with Sequelae]

NARRATIVE: CASE EVENT DATE: 20200819
